FAERS Safety Report 18146643 (Version 1)
Quarter: 2020Q3

REPORT INFORMATION
  Report Type: Spontaneous
  Country: NL (occurrence: NL)
  Receive Date: 20200813
  Receipt Date: 20200813
  Transmission Date: 20201103
  Serious: Yes (Other)
  Sender: FDA-Public Use
  Company Number: NL-PFIZER INC-2020308253

PATIENT
  Age: 58 Year
  Sex: Female

DRUGS (1)
  1. EFEXOR XR [Suspect]
     Active Substance: VENLAFAXINE HYDROCHLORIDE
     Indication: DEPRESSION
     Dosage: 375 MG

REACTIONS (8)
  - Atrial septal defect [Unknown]
  - Muscle tightness [Unknown]
  - Drug level increased [Unknown]
  - Infection [Unknown]
  - Cerebrovascular accident [Unknown]
  - Agitation [Unknown]
  - Toxicity to various agents [Unknown]
  - Tachycardia [Unknown]

NARRATIVE: CASE EVENT DATE: 201912
